FAERS Safety Report 11885672 (Version 1)
Quarter: 2016Q1

REPORT INFORMATION
  Report Type: Spontaneous
  Country: FR (occurrence: FR)
  Receive Date: 20160104
  Receipt Date: 20160104
  Transmission Date: 20160526
  Serious: Yes (Other)
  Sender: FDA-Public Use
  Company Number: FR-JUBILANT CADISTA PHARMACEUTICALS-2015JUB00436

PATIENT
  Age: 25 Year
  Sex: Male

DRUGS (6)
  1. LOXAPINE. [Suspect]
     Active Substance: LOXAPINE
     Indication: AGGRESSION
  2. RISPERIDONE. [Suspect]
     Active Substance: RISPERIDONE
     Indication: AGITATION
     Dosage: 4 MG, 1X/DAY
     Route: 048
     Dates: start: 201410, end: 2014
  3. RISPERIDONE. [Suspect]
     Active Substance: RISPERIDONE
     Indication: AGGRESSION
  4. LOXAPINE. [Suspect]
     Active Substance: LOXAPINE
     Indication: AGITATION
     Dosage: 400 MG, 1X/DAY
     Route: 048
     Dates: start: 201410, end: 2014
  5. LEVOMEPROMAZINE [Concomitant]
     Active Substance: LEVOMEPROMAZINE
     Indication: AGGRESSION
  6. LEVOMEPROMAZINE [Concomitant]
     Active Substance: LEVOMEPROMAZINE
     Indication: AGITATION
     Dosage: 300 MG, 1X/DAY

REACTIONS (3)
  - Rhabdomyolysis [Recovered/Resolved]
  - Deep vein thrombosis [Recovered/Resolved]
  - Acute kidney injury [Recovered/Resolved]

NARRATIVE: CASE EVENT DATE: 2014
